FAERS Safety Report 6245382-3 (Version None)
Quarter: 2009Q2

REPORT INFORMATION
  Report Type: 
  Country: None (occurrence: None)
  Receive Date: 20090625
  Receipt Date: 20090622
  Transmission Date: 20091009
  Serious: Yes (Hospitalization)
  Sender: FDA-Public Use
  Company Number: FR-ASTRAZENECA-2009CG01284

PATIENT
  Age: 31124 Day
  Sex: Male

DRUGS (9)
  1. NEXIUM [Suspect]
     Route: 048
  2. TRIATEC [Suspect]
     Route: 048
     Dates: end: 20090512
  3. TRIATEC [Suspect]
     Route: 048
     Dates: start: 20090501
  4. TEMERIT [Suspect]
     Route: 048
  5. KARDEGIC [Suspect]
     Route: 048
  6. TAHOR [Suspect]
     Route: 048
  7. LORAZEPAM [Suspect]
     Route: 048
  8. LASIX [Concomitant]
     Dates: end: 20090101
  9. KALEORID [Concomitant]

REACTIONS (2)
  - NEUTROPENIA [None]
  - THROMBOCYTOPENIA [None]
